FAERS Safety Report 10174303 (Version 4)
Quarter: 2014Q3

REPORT INFORMATION
  Report Type: Spontaneous
  Country: US (occurrence: US)
  Receive Date: 20140515
  Receipt Date: 20140806
  Transmission Date: 20150326
  Serious: Yes (Life-Threatening, Hospitalization)
  Sender: FDA-Public Use
  Company Number: US-EXELIXIS-CABO-13003351

PATIENT
  Age: 61 Year
  Sex: Male

DRUGS (12)
  1. COMETRIQ [Suspect]
     Active Substance: CABOZANTINIB S-MALATE
     Dosage: 100 MG, QD
     Dates: start: 20140412, end: 2014
  2. COMETRIQ [Suspect]
     Active Substance: CABOZANTINIB S-MALATE
     Dosage: 80 MG, QD
     Dates: end: 2014
  3. ASPIRIN. [Concomitant]
     Active Substance: ASPIRIN
  4. TYLENOL [Concomitant]
     Active Substance: ACETAMINOPHEN
  5. COMETRIQ [Suspect]
     Active Substance: CABOZANTINIB S-MALATE
     Indication: THYROID CANCER
     Dosage: 140 MG, QD
     Route: 048
     Dates: start: 20130901, end: 20130917
  6. LEVOTHYROXINE [Concomitant]
     Active Substance: LEVOTHYROXINE
  7. COMETRIQ [Suspect]
     Active Substance: CABOZANTINIB S-MALATE
     Dosage: UNK
     Dates: start: 2014
  8. METOPROLOL [Concomitant]
     Active Substance: METOPROLOL
  9. COMETRIQ [Suspect]
     Active Substance: CABOZANTINIB S-MALATE
     Dosage: 120 MG, QD
     Route: 048
     Dates: start: 20140103
  10. ACETAMINOPHEN. [Concomitant]
     Active Substance: ACETAMINOPHEN
  11. AMLODIPINE BESYLATE. [Concomitant]
     Active Substance: AMLODIPINE BESYLATE
  12. MULTIVITAMIN [Concomitant]
     Active Substance: VITAMINS

REACTIONS (7)
  - Lung disorder [Recovering/Resolving]
  - Incision site infection [Recovering/Resolving]
  - Staphylococcal infection [Recovering/Resolving]
  - Back disorder [Recovering/Resolving]
  - Chylothorax [Recovering/Resolving]
  - Wound [Unknown]
  - Pneumonia staphylococcal [Unknown]

NARRATIVE: CASE EVENT DATE: 201309
